FAERS Safety Report 5601475-2 (Version None)
Quarter: 2008Q1

REPORT INFORMATION
  Report Type: 
  Country: None (occurrence: None)
  Receive Date: 20080118
  Receipt Date: 20080107
  Transmission Date: 20080703
  Serious: Yes (Other)
  Sender: FDA-Public Use
  Company Number: DSA_31181_2008

PATIENT
  Sex: Male
  Weight: 45.5 kg

DRUGS (4)
  1. ATIVAN [Suspect]
     Indication: ANXIETY
     Dosage: DF
  2. KLONOPIN [Suspect]
     Indication: ANXIETY
     Dosage: DF
  3. XANAX [Suspect]
     Indication: ANXIETY
     Dosage: DF
     Dates: start: 20071201
  4. ZITHROMAX [Suspect]
     Indication: PHARYNGITIS STREPTOCOCCAL
     Dosage: DF
     Dates: start: 20071101, end: 20071101

REACTIONS (3)
  - ANXIETY [None]
  - DRUG INEFFECTIVE [None]
  - NERVOUSNESS [None]
